FAERS Safety Report 9889666 (Version 2)
Quarter: 2014Q1

REPORT INFORMATION
  Report Type: Spontaneous
  Country: FR (occurrence: FR)
  Receive Date: 20140211
  Receipt Date: 20140320
  Transmission Date: 20141002
  Serious: Yes (Life-Threatening, Hospitalization)
  Sender: FDA-Public Use
  Company Number: FR-PFIZER INC-2014037838

PATIENT
  Age: 76 Year
  Sex: Male

DRUGS (4)
  1. CORDARONE [Suspect]
     Indication: ARRHYTHMIA
     Dosage: 400 MG, ONCE (2 TABLETS)
     Route: 048
     Dates: start: 20140109, end: 20140110
  2. CORDARONE [Suspect]
     Dosage: 200 MG, DAILY
     Route: 048
     Dates: end: 20140202
  3. SPORANOX [Concomitant]
     Indication: ASPERGILLUS INFECTION
     Dosage: UNK
     Dates: end: 20140202
  4. ZITHROMAX [Concomitant]
     Indication: PNEUMONIA
     Dosage: UNK
     Dates: start: 201401

REACTIONS (3)
  - Asthma [Recovered/Resolved with Sequelae]
  - Acute respiratory distress syndrome [Unknown]
  - Shock [Unknown]
